FAERS Safety Report 8010999-2 (Version None)
Quarter: 2011Q4

REPORT INFORMATION
  Report Type: 
  Country: None (occurrence: None)
  Receive Date: 20111222
  Receipt Date: 20111216
  Transmission Date: 20120403
  Serious: No
  Sender: FDA-Public Use
  Company Number: TCI2011A04582

PATIENT
  Age: 66 Year
  Sex: Male

DRUGS (4)
  1. BLOPRESS (CANDESARTAN CILEXETIL) [Concomitant]
  2. CRESTOR [Concomitant]
  3. NORVASC [Concomitant]
  4. ACTOS [Suspect]
     Indication: DIABETES MELLITUS
     Dosage: 15 MG (15 MG,1 IN 1 D), PER ORAL
     Route: 048
     Dates: start: 20100310, end: 20110707

REACTIONS (1)
  - BLADDER CANCER RECURRENT [None]
